FAERS Safety Report 5832120-9 (Version None)
Quarter: 2008Q3

REPORT INFORMATION
  Report Type: 
  Country: None (occurrence: None)
  Receive Date: 20080731
  Receipt Date: 20080723
  Transmission Date: 20090109
  Serious: Yes (Death)
  Sender: FDA-Public Use
  Company Number: 163-21880-08060162

PATIENT
  Age: 62 Year
  Sex: Female

DRUGS (7)
  1. REVLIMID [Suspect]
     Indication: MULTIPLE MYELOMA
     Dosage: 10 MG, QD, X21 DAYS, ORAL
     Route: 048
     Dates: start: 20070725, end: 20080421
  2. ASPIRIN [Concomitant]
  3. PREVACID [Concomitant]
  4. DEXAMETHASONE TAB [Concomitant]
  5. ATENOLOL [Concomitant]
  6. VICODIN [Concomitant]
  7. ALEVE (CAPLET) [Concomitant]

REACTIONS (3)
  - MALIGNANT NEOPLASM PROGRESSION [None]
  - MULTIPLE MYELOMA [None]
  - PLASMACYTOMA [None]
